FAERS Safety Report 6251881-0 (Version None)
Quarter: 2009Q2

REPORT INFORMATION
  Report Type: 
  Country: None (occurrence: None)
  Receive Date: 20090630
  Receipt Date: 20090615
  Transmission Date: 20091009
  Serious: Yes (Hospitalization)
  Sender: FDA-Public Use
  Company Number: TR-GENENTECH-285782

PATIENT

DRUGS (1)
  1. XOLAIR [Suspect]
     Indication: ASTHMA

REACTIONS (11)
  - CARDIAC ENZYMES INCREASED [None]
  - CHEST PAIN [None]
  - DYSPNOEA [None]
  - LEUKOCYTOSIS [None]
  - MALAISE [None]
  - MYALGIA [None]
  - MYOCARDITIS [None]
  - NEUTROPHIL COUNT INCREASED [None]
  - PYREXIA [None]
  - RALES [None]
  - TACHYCARDIA [None]
